FAERS Safety Report 6007533-5 (Version None)
Quarter: 2008Q4

REPORT INFORMATION
  Report Type: 
  Country: None (occurrence: None)
  Receive Date: 20081217
  Receipt Date: 20080505
  Transmission Date: 20090506
  Serious: No
  Sender: FDA-Public Use
  Company Number: US-ASTRAZENECA-2008UW09197

PATIENT
  Age: 71 Year
  Sex: Female
  Weight: 77.1 kg

DRUGS (7)
  1. CRESTOR [Suspect]
     Indication: BLOOD CHOLESTEROL
     Route: 048
     Dates: start: 20060101
  2. MICARDIS [Concomitant]
  3. TOPROL-XL [Concomitant]
     Route: 048
  4. EVISTA [Concomitant]
  5. NEXIUM [Concomitant]
     Route: 048
  6. SYNTHROID [Concomitant]
  7. NORVASC [Concomitant]

REACTIONS (1)
  - HAEMOGLOBIN DECREASED [None]
